FAERS Safety Report 8173915-9 (Version None)
Quarter: 2012Q1

REPORT INFORMATION
  Report Type: 
  Country: None (occurrence: None)
  Receive Date: 20120229
  Receipt Date: 20120217
  Transmission Date: 20120608
  Serious: Yes (Hospitalization, Other)
  Sender: FDA-Public Use
  Company Number: US-ELI_LILLY_AND_COMPANY-US201008007848

PATIENT
  Sex: Female

DRUGS (14)
  1. FORTEO [Suspect]
     Indication: OSTEOPOROSIS
     Dosage: 20 UG, DAILY (1/D)
  2. LIPITOR [Concomitant]
  3. LEXAPRO [Concomitant]
  4. ASPIRIN [Concomitant]
  5. FOLIC ACID [Concomitant]
  6. AMLODIPINE [Concomitant]
  7. FORTEO [Suspect]
     Dosage: 20 UG, QD
     Dates: end: 20111201
  8. SPIRONOLACTONE [Concomitant]
  9. LANSOPRAZOLE [Concomitant]
  10. SUCRAFATE [Concomitant]
  11. FORTEO [Suspect]
     Dosage: 20 UG, QD
  12. FUROSEMIDE [Concomitant]
  13. CARVEDILOL [Concomitant]
  14. CLONIDINE [Concomitant]

REACTIONS (6)
  - MEMORY IMPAIRMENT [None]
  - HAEMORRHAGE [None]
  - HIP FRACTURE [None]
  - ARTHROPATHY [None]
  - HAEMATEMESIS [None]
  - BLOOD PRESSURE DECREASED [None]
